FAERS Safety Report 6229743-4 (Version None)
Quarter: 2009Q2

REPORT INFORMATION
  Report Type: 
  Country: None (occurrence: None)
  Receive Date: 20090615
  Receipt Date: 20090605
  Transmission Date: 20091009
  Serious: Yes (Hospitalization, Other)
  Sender: FDA-Public Use
  Company Number: PHHY2009FR19800

PATIENT
  Sex: Female

DRUGS (3)
  1. INIPOMP [Suspect]
  2. ACLASTA [Suspect]
     Route: 042
  3. VISKEN [Suspect]

REACTIONS (8)
  - CARDIAC FAILURE [None]
  - CARDIAC TAMPONADE [None]
  - DISSEMINATED INTRAVASCULAR COAGULATION [None]
  - DYSPNOEA EXERTIONAL [None]
  - LYME DISEASE [None]
  - PERICARDIAL EFFUSION [None]
  - PLEURAL EFFUSION [None]
  - THROMBOCYTOPENIA [None]
